FAERS Safety Report 9839069 (Version 2)
Quarter: 2014Q1

REPORT INFORMATION
  Report Type: Spontaneous
  Country: US (occurrence: US)
  Receive Date: 20140123
  Receipt Date: 20140130
  Transmission Date: 20141002
  Serious: Yes (Death)
  Sender: FDA-Public Use
  Company Number: US-INCYTE CORPORATION-2014IN000144

PATIENT
  Sex: Female
  Weight: 70.3 kg

DRUGS (2)
  1. JAKAFI [Suspect]
     Dosage: 15 MG, BID
     Route: 048
  2. JAKAFI [Suspect]
     Dosage: 25 MG, BID
     Route: 048
     Dates: start: 20130419

REACTIONS (1)
  - Death [Fatal]
